FAERS Safety Report 21848495 (Version 1)
Quarter: 2023Q1

REPORT INFORMATION
  Report Type: Spontaneous
  Country: US (occurrence: US)
  Receive Date: 20230111
  Receipt Date: 20230111
  Transmission Date: 20230417
  Serious: No
  Sender: FDA-Public Use
  Company Number: US-CHEMOCENTRYX, INC.-2022USCCXI0520

PATIENT

DRUGS (5)
  1. TAVNEOS [Suspect]
     Active Substance: AVACOPAN
     Indication: Microscopic polyangiitis
     Dosage: 30 MG, 2X/DAY
     Route: 065
     Dates: start: 20221117
  2. TAVNEOS [Suspect]
     Active Substance: AVACOPAN
     Indication: Antineutrophil cytoplasmic antibody
  3. PREDNISONE [Concomitant]
     Active Substance: PREDNISONE
     Indication: Product used for unknown indication
  4. XARELTO [Concomitant]
     Active Substance: RIVAROXABAN
     Indication: Product used for unknown indication
  5. UNSPECIFIED INGREDIENT [Suspect]
     Active Substance: UNSPECIFIED INGREDIENT
     Indication: Product used for unknown indication

REACTIONS (1)
  - Epistaxis [Recovering/Resolving]

NARRATIVE: CASE EVENT DATE: 20221118
